FAERS Safety Report 7552610-0 (Version None)
Quarter: 2011Q2

REPORT INFORMATION
  Report Type: 
  Country: None (occurrence: None)
  Receive Date: 20110616
  Receipt Date: 20110614
  Transmission Date: 20111010
  Serious: Yes (Other)
  Sender: FDA-Public Use
  Company Number: CHPA2011US08039

PATIENT
  Age: 37 Year
  Sex: Female

DRUGS (2)
  1. EXCEDRIN PM [Suspect]
     Indication: ANALGESIC THERAPY
     Dosage: 2 DF, QD
     Route: 048
     Dates: start: 20110601, end: 20110612
  2. AMITRIPTYLINE HYDROCHLORIDE [Suspect]
     Indication: ANALGESIC THERAPY
     Dosage: UNK DF, UNK
     Dates: start: 20080101

REACTIONS (3)
  - CONVULSION [None]
  - SOMNOLENCE [None]
  - INSOMNIA [None]
